FAERS Safety Report 11412615 (Version 1)
Quarter: 2015Q3

REPORT INFORMATION
  Report Type: Spontaneous
  Country: US (occurrence: US)
  Receive Date: 20150821
  Receipt Date: 20150821
  Transmission Date: 20151125
  Serious: No
  Sender: FDA-Public Use
  Company Number: US-ELI_LILLY_AND_COMPANY-US201205000145

PATIENT
  Age: 82 Year
  Sex: Male

DRUGS (3)
  1. CORTISONE [Concomitant]
     Active Substance: CORTISONE\HYDROCORTISONE
     Dosage: UNK
  2. HUMULIN N [Suspect]
     Active Substance: INSULIN HUMAN
     Dosage: 5 TO 10 U, TID OR QID
     Dates: start: 1992
  3. HUMULIN N [Suspect]
     Active Substance: INSULIN HUMAN
     Indication: DIABETES MELLITUS
     Dosage: 5 TO 10 U, TID OR QID
     Dates: start: 1992

REACTIONS (3)
  - Incorrect product storage [Recovered/Resolved]
  - Visual acuity reduced [Unknown]
  - Blood glucose increased [Unknown]

NARRATIVE: CASE EVENT DATE: 20120426
